FAERS Safety Report 6812647-3 (Version None)
Quarter: 2010Q3

REPORT INFORMATION
  Report Type: 
  Country: None (occurrence: None)
  Receive Date: 20100701
  Receipt Date: 20100621
  Transmission Date: 20110219
  Serious: Yes (Other)
  Sender: FDA-Public Use
  Company Number: US-PFIZER INC-2010077994

PATIENT
  Sex: Female
  Weight: 58.957 kg

DRUGS (1)
  1. XANAX [Suspect]
     Indication: ANXIETY
     Dosage: 5 MG, AS NEEDED
     Route: 048
     Dates: start: 20090101, end: 20090101

REACTIONS (6)
  - ABASIA [None]
  - DRUG INTOLERANCE [None]
  - HYPERSOMNIA [None]
  - LETHARGY [None]
  - SOMNOLENCE [None]
  - SPEECH DISORDER [None]
